FAERS Safety Report 7423316 (Version 5)
Quarter: 2014Q1

REPORT INFORMATION
  Report Type: Report from Study
  Country: CA (occurrence: CA)
  Receive Date: 20100617
  Receipt Date: 20140217
  Transmission Date: 20141002
  Serious: Yes (Hospitalization, Other)
  Sender: FDA-Public Use
  Company Number: PHHY2010CA31069

PATIENT
  Age: 52 Year
  Sex: Female

DRUGS (7)
  1. SANDOSTATIN LAR [Suspect]
     Indication: ACROMEGALY
     Dosage: 30 MG EVERY 4 WEEKS
     Route: 030
     Dates: start: 20100308
  2. SANDOSTATIN LAR [Suspect]
     Dosage: UNK UKN, UNK
     Route: 030
     Dates: start: 201005
  3. SANDOSTATIN LAR [Suspect]
     Dosage: 40 MG, QMO
     Route: 030
  4. SANDOSTATIN LAR [Suspect]
     Dosage: 30 MG, EVERY 4 WEEKS
     Route: 030
     Dates: start: 20100308, end: 20120620
  5. SANDOSTATIN LAR [Suspect]
     Dosage: 20 MG, EVERY 4 WEEKS
     Route: 030
  6. NAPROXEN [Concomitant]
     Dosage: 375 MG, UNK
  7. NAPROXEN [Concomitant]
     Dosage: 500 MG, UNK

REACTIONS (13)
  - Thyroid neoplasm [Unknown]
  - Gastrooesophageal reflux disease [Unknown]
  - Oral discomfort [Unknown]
  - Throat irritation [Unknown]
  - Dry mouth [Unknown]
  - Oropharyngeal pain [Unknown]
  - Rhinorrhoea [Unknown]
  - Eye pain [Unknown]
  - Sensation of pressure [Unknown]
  - Constipation [Unknown]
  - Abdominal discomfort [Unknown]
  - Headache [Not Recovered/Not Resolved]
  - Heart rate decreased [Unknown]
